FAERS Safety Report 6681959-9 (Version None)
Quarter: 2010Q2

REPORT INFORMATION
  Report Type: 
  Country: None (occurrence: None)
  Receive Date: 20100401
  Receipt Date: 20100324
  Transmission Date: 20101027
  Serious: Yes (Hospitalization, Other)
  Sender: FDA-Public Use
  Company Number: THYM-1001179

PATIENT
  Age: 41 Year
  Sex: Male
  Weight: 71.7 kg

DRUGS (54)
  1. THYMOGLOBULIN [Suspect]
     Indication: STEM CELL TRANSPLANT
     Dosage: 41 MG, INTRAVENOUS 124 MG, INTRAVENOUS 166 MG, INTRAVENOUS
     Route: 042
     Dates: start: 20090608, end: 20090608
  2. THYMOGLOBULIN [Suspect]
     Indication: STEM CELL TRANSPLANT
     Dosage: 41 MG, INTRAVENOUS 124 MG, INTRAVENOUS 166 MG, INTRAVENOUS
     Route: 042
     Dates: start: 20090609, end: 20090609
  3. THYMOGLOBULIN [Suspect]
     Indication: STEM CELL TRANSPLANT
     Dosage: 41 MG, INTRAVENOUS 124 MG, INTRAVENOUS 166 MG, INTRAVENOUS
     Route: 042
     Dates: start: 20090610, end: 20090610
  4. MOZOBIL (PLERIXAFOR) [Concomitant]
  5. ALUMINUM AND MAGNESIUM HYDROXIDE-SIMETHICONE [Concomitant]
  6. . [Concomitant]
  7. CARVEDILOL [Concomitant]
  8. CHOLECALCIFEROL [Concomitant]
  9. DEXTROSE [Concomitant]
  10. DULOXETINE HYDROCHLORIDE [Concomitant]
  11. FOLIC ACID [Concomitant]
  12. FOSCARNET [Concomitant]
  13. GABAPENTIN [Concomitant]
  14. GLIPIZIDE [Concomitant]
  15. HYDROCORTISONE SODIUM SUCCINATE [Concomitant]
  16. HYDROMORPHONE HCL [Concomitant]
  17. INSULIN (INSULIN HUMAN) [Concomitant]
  18. LISINOPRIL [Concomitant]
  19. LORAZEPAM [Concomitant]
  20. MAGNESIUM OXIDE (MAGNESIUM OXIDE) [Concomitant]
  21. MAGNESIUM SULFATE [Concomitant]
  22. . [Concomitant]
  23. . [Concomitant]
  24. METHYLPREDNISOLONE [Concomitant]
  25. MOXIFLOXACIN HCL [Concomitant]
  26. MULTIVITAMIN [Concomitant]
  27. OMEPRAZOLE [Concomitant]
  28. ONDANSETRON HCL (ODANSETRON HCL) [Concomitant]
  29. . [Concomitant]
  30. OXYBUTYNIN CHLORIDE (OXYBUTYNIN HYDROCHLORIDE) [Concomitant]
  31. OXYMORPHONE HYDROCHLORIDE (OXYMORPHONE HYDROCHLORIDE) [Concomitant]
  32. . [Concomitant]
  33. . [Concomitant]
  34. . [Concomitant]
  35. OYSTER SHELL CALCIUM (CALCIUM CARBONATE) [Concomitant]
  36. POSACONAZOLE [Concomitant]
  37. POTASSIUM CHLORIDE [Concomitant]
  38. . [Concomitant]
  39. POTASSIUM PHOSPHATES [Concomitant]
  40. SENNOSIDES DOCUSATES SODIUM (SENNOSIDES DOCUSATE SODIUM) [Concomitant]
  41. SODIUM CHLORIDE 0.9% [Concomitant]
  42. SODIUM PHOSPHATE (SODIUM PHOSPHATE) [Concomitant]
  43. TACROLIMUS [Concomitant]
  44. VALACICLOVIR (HYDROCHLORIDE (VALCICLOVIR HYDROCHLORIDE) [Concomitant]
  45. ATOVAQUONE [Concomitant]
  46. AMBIEN [Concomitant]
  47. ALLEGRA [Concomitant]
  48. IMODIUM [Concomitant]
  49. OPANA [Concomitant]
  50. SENOKOT (SENNA ALEXANDRINA) [Concomitant]
  51. NORVASC [Concomitant]
  52. PENTAMIDINE (PENTAMIDINE) [Concomitant]
  53. URSODIOL [Concomitant]
  54. BUDESONIDE [Concomitant]

REACTIONS (12)
  - ACUTE GRAFT VERSUS HOST DISEASE IN SKIN [None]
  - ADRENAL INSUFFICIENCY [None]
  - BLOOD PHOSPHORUS DECREASED [None]
  - BLOOD PHOSPHORUS INCREASED [None]
  - CONSTIPATION [None]
  - HYDRONEPHROSIS [None]
  - HYPOMAGNESAEMIA [None]
  - NAUSEA [None]
  - RENAL FAILURE ACUTE [None]
  - URETERIC STENOSIS [None]
  - VIRAL HAEMORRHAGIC CYSTITIS [None]
  - VOMITING [None]
